FAERS Safety Report 24617254 (Version 2)
Quarter: 2024Q4

REPORT INFORMATION
  Report Type: Spontaneous
  Country: NL (occurrence: NL)
  Receive Date: 20241114
  Receipt Date: 20241206
  Transmission Date: 20250114
  Serious: Yes (Life-Threatening, Disabling)
  Sender: BAUSCH AND LOMB
  Company Number: NL-MLMSERVICE-20241101-PI247662-00217-1

PATIENT
  Age: 79 Year
  Sex: Female

DRUGS (1)
  1. METFORMIN [Suspect]
     Active Substance: METFORMIN HYDROCHLORIDE
     Indication: Product used for unknown indication
     Route: 065

REACTIONS (2)
  - Blindness [Recovered/Resolved]
  - Lactic acidosis [Recovering/Resolving]
